FAERS Safety Report 7321821-1 (Version None)
Quarter: 2011Q1

REPORT INFORMATION
  Report Type: 
  Country: None (occurrence: None)
  Receive Date: 20110228
  Receipt Date: 20110214
  Transmission Date: 20110831
  Serious: Yes (Death, Hospitalization, Other)
  Sender: FDA-Public Use
  Company Number: PHHY2011JP11945

PATIENT
  Age: 68 Year
  Sex: Female

DRUGS (1)
  1. METHOTREXATE [Suspect]
     Indication: RHEUMATOID ARTHRITIS
     Dosage: UNK
     Dates: start: 20000101

REACTIONS (7)
  - B-CELL LYMPHOMA [None]
  - PNEUMONIA [None]
  - LYMPHADENOPATHY [None]
  - LOCAL SWELLING [None]
  - SALIVARY GLAND NEOPLASM [None]
  - EPSTEIN-BARR VIRUS INFECTION [None]
  - PAROTID GLAND ENLARGEMENT [None]
